FAERS Safety Report 7690769-5 (Version None)
Quarter: 2011Q3

REPORT INFORMATION
  Report Type: 
  Country: None (occurrence: None)
  Receive Date: 20110818
  Receipt Date: 20110808
  Transmission Date: 20111222
  Serious: Yes (Hospitalization)
  Sender: FDA-Public Use
  Company Number: BR-SANOFI-AVENTIS-2011SA051151

PATIENT
  Age: 39 Year
  Sex: Female
  Weight: 90 kg

DRUGS (4)
  1. TRAMADOL HYDROCHLORIDE [Concomitant]
     Dates: start: 20110627
  2. DOCETAXEL [Suspect]
     Indication: BREAST CANCER
     Route: 041
     Dates: start: 20110705, end: 20110705
  3. BLINDED THERAPY [Suspect]
     Indication: BREAST CANCER
     Dates: start: 20110705
  4. DEXAMETHASONE [Concomitant]
     Dates: start: 20110627

REACTIONS (1)
  - HYDROCEPHALUS [None]
